FAERS Safety Report 5713535-6 (Version None)
Quarter: 2008Q2

REPORT INFORMATION
  Report Type: 
  Country: None (occurrence: None)
  Receive Date: 20080422
  Receipt Date: 20080410
  Transmission Date: 20081010
  Serious: Yes (Other)
  Sender: FDA-Public Use
  Company Number: GB-PFIZER INC-2008033230

PATIENT
  Age: 54 Year
  Sex: Female

DRUGS (4)
  1. CHAMPIX [Suspect]
     Route: 048
     Dates: start: 20080129, end: 20080320
  2. AMOXICILLIN [Concomitant]
     Indication: BRONCHITIS
     Route: 048
  3. CITALOPRAM HYDROBROMIDE [Concomitant]
     Indication: DEPRESSION
     Route: 048
  4. EVOREL [Concomitant]
     Indication: MENOPAUSE
     Route: 062

REACTIONS (2)
  - DEPRESSED MOOD [None]
  - FEELING ABNORMAL [None]
